FAERS Safety Report 22202542 (Version 8)
Quarter: 2023Q4

REPORT INFORMATION
  Report Type: Spontaneous
  Country: US (occurrence: US)
  Receive Date: 20230412
  Receipt Date: 20231113
  Transmission Date: 20240110
  Serious: Yes (Hospitalization, Other)
  Sender: FDA-Public Use
  Company Number: US-PFIZER INC-PV202300064501

PATIENT
  Age: 75 Year
  Sex: Female
  Weight: 64.14 kg

DRUGS (3)
  1. IBRANCE [Suspect]
     Active Substance: PALBOCICLIB
     Indication: Breast cancer metastatic
     Dosage: 100 MG, CYCLIC(1 TABLET DAILY FOR 21 DAYS AND THEN OFF FOR 7 DAYS)
     Route: 048
  2. ALBUTEROL SULFATE [Suspect]
     Active Substance: ALBUTEROL SULFATE
     Dosage: UNK
     Dates: start: 202302
  3. LETROZOLE [Suspect]
     Active Substance: LETROZOLE
     Indication: HER2 positive breast cancer
     Dosage: 2.5 MG, 1X/DAY
     Route: 048
     Dates: start: 202302

REACTIONS (18)
  - Pneumonia [Unknown]
  - Pulmonary oedema [Unknown]
  - COVID-19 [Unknown]
  - Neoplasm progression [Unknown]
  - Off label use [Unknown]
  - Asthenia [Unknown]
  - Paranasal sinus hypersecretion [Not Recovered/Not Resolved]
  - Dry eye [Not Recovered/Not Resolved]
  - Fatigue [Unknown]
  - Dry mouth [Unknown]
  - White blood cell count decreased [Unknown]
  - Joint swelling [Unknown]
  - Blood potassium increased [Unknown]
  - Heart rate increased [Unknown]
  - Decreased activity [Unknown]
  - Dyspnoea [Recovering/Resolving]
  - Hypotension [Recovering/Resolving]
  - Red blood cell count decreased [Unknown]

NARRATIVE: CASE EVENT DATE: 20221201
